FAERS Safety Report 8761254 (Version 1)
Quarter: 2012Q4

REPORT INFORMATION
  Report Type: 
  Country: DE (occurrence: DE)
  Receive Date: 20120830
  Receipt Date: 20120830
  Transmission Date: 20130627
  Serious: Yes (Congenital Anomaly)
  Sender: FDA-Public Use
  Company Number: DE-GLAXOSMITHKLINE-D0076843A

PATIENT
  Age: 0 Year
  Sex: Male
  Weight: 3.5 kg

DRUGS (2)
  1. FLUTICASONE PROPIONATE\SALMETEROL XINAFOATE [Suspect]
     Indication: ASTHMA
     Route: 064
     Dates: start: 20110810, end: 20120514
  2. HERBAL NOS [Suspect]
     Indication: ANXIETY DISORDER
     Route: 064

REACTIONS (2)
  - Hypospadias [Not Recovered/Not Resolved]
  - Foetal exposure during pregnancy [Unknown]
